FAERS Safety Report 4561116-2 (Version None)
Quarter: 2005Q1

REPORT INFORMATION
  Report Type: 
  Country: None (occurrence: None)
  Receive Date: 20050124
  Receipt Date: 20050124
  Transmission Date: 20050727
  Serious: Yes (Life-Threatening, Hospitalization, Disabling, Other)
  Sender: FDA-Public Use
  Company Number: None

PATIENT

DRUGS (1)
  1. THYROLAR [Suspect]
     Indication: THYROID OPERATION
     Dosage: 1 - DAILY

REACTIONS (7)
  - CARDIAC ARREST [None]
  - FATIGUE [None]
  - HYPERSOMNIA [None]
  - MUSCLE SPASMS [None]
  - NERVOUSNESS [None]
  - PHARMACEUTICAL PRODUCT COMPLAINT [None]
  - WEIGHT INCREASED [None]
